FAERS Safety Report 22337774 (Version 1)
Quarter: 2023Q2

REPORT INFORMATION
  Report Type: Spontaneous
  Country: US (occurrence: US)
  Receive Date: 20230518
  Receipt Date: 20230518
  Transmission Date: 20230722
  Serious: No
  Sender: FDA-Public Use
  Company Number: US-COLLEGIUM PHARMACEUTICAL, INC.-20230400332

PATIENT

DRUGS (4)
  1. XTAMPZA ER [Suspect]
     Active Substance: OXYCODONE
     Indication: Back pain
     Dosage: 13.5 MILLIGRAM, UNKNOWN
     Route: 065
     Dates: start: 20230224
  2. OXYCODONE [Concomitant]
     Active Substance: OXYCODONE
     Indication: Back pain
     Dosage: UNK, UNKNOWN
     Route: 065
  3. IBRANCE [Concomitant]
     Active Substance: PALBOCICLIB
     Indication: Product used for unknown indication
     Dosage: 125 MILLIGRAM, UNKNOWN
     Route: 065
  4. IBRANCE [Concomitant]
     Active Substance: PALBOCICLIB
     Dosage: 100 MILLIGRAM (21 DAYS ON, 7 DAYS OFF)
     Route: 065

REACTIONS (4)
  - Somnolence [Unknown]
  - Disturbance in attention [Unknown]
  - Exercise lack of [Unknown]
  - Cognitive disorder [Unknown]

NARRATIVE: CASE EVENT DATE: 20230101
